FAERS Safety Report 5637802-X (Version None)
Quarter: 2008Q1

REPORT INFORMATION
  Report Type: 
  Country: None (occurrence: None)
  Receive Date: 20080220
  Receipt Date: 20080212
  Transmission Date: 20080703
  Serious: Yes (Hospitalization)
  Sender: FDA-Public Use
  Company Number: 163-20785-08010870

PATIENT
  Age: 58 Year
  Sex: Male

DRUGS (1)
  1. THALOMID [Suspect]
     Indication: GAMMOPATHY
     Dosage: 50 MG, 1 IN 1 D, ORAL
     Route: 048
     Dates: start: 20071128, end: 20071201

REACTIONS (2)
  - ASTHENIA [None]
  - HIP FRACTURE [None]
